FAERS Safety Report 5021556-4 (Version None)
Quarter: 2006Q2

REPORT INFORMATION
  Report Type: 
  Country: None (occurrence: None)
  Receive Date: 20060601
  Receipt Date: 20060308
  Transmission Date: 20061013
  Serious: No
  Sender: FDA-Public Use
  Company Number: 2006PV009999

PATIENT
  Age: 47 Year
  Sex: Male

DRUGS (4)
  1. BYETTA [Suspect]
     Indication: DIABETES MELLITUS NON-INSULIN-DEPENDENT
     Dosage: 5 MCG;SC
     Route: 058
     Dates: start: 20051121, end: 20060301
  2. ACTOS [Concomitant]
  3. METAGLIP [Concomitant]
  4. ALTACE [Concomitant]

REACTIONS (2)
  - DYSPNOEA [None]
  - GASTRIC CANCER [None]
